FAERS Safety Report 6890143-5 (Version None)
Quarter: 2010Q3

REPORT INFORMATION
  Report Type: 
  Country: None (occurrence: None)
  Receive Date: 20100730
  Receipt Date: 20080813
  Transmission Date: 20110219
  Serious: No
  Sender: FDA-Public Use
  Company Number: US-PFIZER INC-2008068259

PATIENT
  Sex: Female
  Weight: 72.727 kg

DRUGS (6)
  1. LIPITOR [Suspect]
     Indication: BLOOD CHOLESTEROL INCREASED
     Route: 048
     Dates: start: 20010101
  2. LEVOTHYROXINE SODIUM [Concomitant]
  3. CARDIAC THERAPY [Concomitant]
  4. ACETYLSALICYLIC ACID SRT [Concomitant]
  5. DRUG, UNSPECIFIED [Concomitant]
  6. OPHTHALMOLOGICALS [Concomitant]
     Route: 031

REACTIONS (2)
  - BODY HEIGHT DECREASED [None]
  - WRONG TECHNIQUE IN DRUG USAGE PROCESS [None]
